FAERS Safety Report 20957139 (Version 1)
Quarter: 2022Q2

REPORT INFORMATION
  Report Type: Spontaneous
  Country: US (occurrence: US)
  Receive Date: 20220614
  Receipt Date: 20220614
  Transmission Date: 20220721
  Serious: No
  Sender: FDA-Public Use
  Company Number: US-BAYER-2022A081289

PATIENT
  Age: 75 Year
  Sex: Female

DRUGS (1)
  1. MIRALAX [Suspect]
     Active Substance: POLYETHYLENE GLYCOL 3350
     Indication: Gastrointestinal disorder
     Dosage: 1 1/2 CAP FULL
     Route: 048
     Dates: start: 20220601, end: 20220608

REACTIONS (3)
  - Abdominal discomfort [Not Recovered/Not Resolved]
  - Incorrect product administration duration [Unknown]
  - Incorrect dosage administered [None]
